FAERS Safety Report 15675049 (Version 5)
Quarter: 2019Q1

REPORT INFORMATION
  Report Type: Spontaneous
  Country: US (occurrence: US)
  Receive Date: 20181130
  Receipt Date: 20190204
  Transmission Date: 20190417
  Serious: No
  Sender: FDA-Public Use
  Company Number: US-PFIZER INC-2018474259

PATIENT
  Age: 64 Year
  Sex: Male
  Weight: 96.16 kg

DRUGS (8)
  1. DEPO-TESTOSTERONE [Suspect]
     Active Substance: TESTOSTERONE CYPIONATE
     Indication: BLOOD TESTOSTERONE DECREASED
     Dosage: 50 MG (0.25 ML), WEEKLY (EVERY 7 DAYS)
     Route: 030
     Dates: start: 2018
  2. LEXAPRO [Concomitant]
     Active Substance: ESCITALOPRAM OXALATE
     Indication: ANXIETY
     Dosage: 10 MG, ONCE DAILY
     Route: 048
  3. MAGNESIUM [Concomitant]
     Active Substance: MAGNESIUM
     Indication: ATRIAL FIBRILLATION
     Dosage: 500 MG, ONCE DAILY
     Route: 048
  4. DEPO-TESTOSTERONE [Suspect]
     Active Substance: TESTOSTERONE CYPIONATE
     Indication: ERECTILE DYSFUNCTION
     Dosage: 50 MG (0.25 ML), WEEKLY (EVERY 7 DAYS)
     Route: 030
     Dates: start: 2018
  5. VITAMIN D [Concomitant]
     Active Substance: CHOLECALCIFEROL
     Indication: ATRIAL FIBRILLATION
     Dosage: UNK, ONCE DAILY
     Route: 048
  6. CARTIA [DILTIAZEM HYDROCHLORIDE] [Concomitant]
     Indication: ATRIAL FIBRILLATION
     Dosage: 120 MG, ONCE DAILY
     Route: 048
  7. LASIX [Concomitant]
     Active Substance: FUROSEMIDE
     Indication: WEIGHT INCREASED
  8. LASIX [Concomitant]
     Active Substance: FUROSEMIDE
     Indication: FLUID RETENTION
     Dosage: 40 MG, AS NEEDED
     Route: 048

REACTIONS (4)
  - Blood testosterone increased [Recovered/Resolved]
  - Extra dose administered [Unknown]
  - Multiple use of single-use product [Unknown]
  - Hypoacusis [Recovered/Resolved]

NARRATIVE: CASE EVENT DATE: 2018
